FAERS Safety Report 6273164-5 (Version None)
Quarter: 2009Q3

REPORT INFORMATION
  Report Type: 
  Country: None (occurrence: None)
  Receive Date: 20090720
  Receipt Date: 20090710
  Transmission Date: 20100115
  Serious: Yes (Hospitalization)
  Sender: FDA-Public Use
  Company Number: JP-BRISTOL-MYERS SQUIBB COMPANY-14526271

PATIENT
  Age: 61 Year
  Sex: Male

DRUGS (4)
  1. ERBITUX [Suspect]
     Indication: RECTAL CANCER
     Dosage: INITIATED ON 700MG ON 15JAN09;400MG 22JAN-05FEB09,14D:400MG,26FEB09;
     Route: 042
     Dates: start: 20090122
  2. IRINOTECAN HCL [Concomitant]
     Indication: RECTAL CANCER
     Dosage: TO 5FEB09; 12MAR09, 160MG, 1 IN 1WK
     Route: 042
     Dates: start: 20090115
  3. DIPHENHYDRAMINE HCL [Concomitant]
     Indication: PREMEDICATION
     Dosage: 1 DF- 5TAB REDUCED TO 4TABS AND 3 TABS
     Dates: start: 20090115
  4. DEXART [Concomitant]
     Indication: PREMEDICATION
     Dosage: 5T-4T-3T
     Route: 042
     Dates: start: 20090115

REACTIONS (3)
  - ANAEMIA [None]
  - ASCITES [None]
  - DUODENAL ULCER [None]
